FAERS Safety Report 23645552 (Version 1)
Quarter: 2024Q1

REPORT INFORMATION
  Report Type: Spontaneous
  Country: JP (occurrence: JP)
  Receive Date: 20240319
  Receipt Date: 20240319
  Transmission Date: 20240409
  Serious: Yes (Hospitalization, Other)
  Sender: FDA-Public Use
  Company Number: JP-TEVA-VS-3169478

PATIENT
  Age: 77 Year
  Sex: Female

DRUGS (6)
  1. CARBOPLATIN [Suspect]
     Active Substance: CARBOPLATIN
     Indication: Lung adenocarcinoma recurrent
     Dosage: RECEIVED AT AREA UNDER THE CURVE AT 5
     Route: 065
     Dates: start: 2021
  2. PEMETREXED [Suspect]
     Active Substance: PEMETREXED
     Indication: Lung adenocarcinoma recurrent
     Dosage: RECEIVED TWO COURSES
     Route: 065
  3. IPILIMUMAB [Suspect]
     Active Substance: IPILIMUMAB
     Indication: Lung adenocarcinoma recurrent
     Dosage: RECEIVED TWO COURSES ALONG WITH PEMETREXED
     Route: 065
  4. IPILIMUMAB [Suspect]
     Active Substance: IPILIMUMAB
     Indication: Lung adenocarcinoma recurrent
     Route: 065
     Dates: start: 2021
  5. NIVOLUMAB [Suspect]
     Active Substance: NIVOLUMAB
     Indication: Lung adenocarcinoma recurrent
     Route: 065
     Dates: start: 2021
  6. NIVOLUMAB [Suspect]
     Active Substance: NIVOLUMAB
     Indication: Lung adenocarcinoma recurrent
     Dosage: RECEIVED TWO COURSES WITH PEMETREXED
     Route: 065

REACTIONS (4)
  - Immune-mediated hepatitis [Recovering/Resolving]
  - Dehydration [Unknown]
  - Pulmonary toxicity [Recovering/Resolving]
  - Drug ineffective [Unknown]
